FAERS Safety Report 8507926 (Version 2)
Quarter: 2013Q1

REPORT INFORMATION
  Report Type: Spontaneous
  Country: US (occurrence: US)
  Receive Date: 20120412
  Receipt Date: 20130110
  Transmission Date: 20140127
  Serious: No
  Sender: FDA-Public Use
  Company Number: US-ASTRAZENECA-2011SE69424

PATIENT
  Age: 56 Year
  Sex: Female

DRUGS (2)
  1. SYMBICORT PMDI [Suspect]
     Route: 055
  2. NEXIUM [Suspect]
     Route: 048

REACTIONS (12)
  - Pyrexia [Unknown]
  - Rhinitis [Unknown]
  - Nasopharyngitis [Unknown]
  - Diabetes mellitus [Unknown]
  - Blood cholesterol abnormal [Unknown]
  - Infection [Unknown]
  - Eye disorder [Unknown]
  - Feeling abnormal [Unknown]
  - Oral mucosal blistering [Unknown]
  - Dysphonia [Unknown]
  - Oropharyngeal pain [Unknown]
  - Hypersensitivity [Unknown]
